FAERS Safety Report 6228296-4 (Version None)
Quarter: 2009Q2

REPORT INFORMATION
  Report Type: 
  Country: None (occurrence: None)
  Receive Date: 20090612
  Receipt Date: 20090608
  Transmission Date: 20091009
  Serious: Yes (Hospitalization)
  Sender: FDA-Public Use
  Company Number: PHHO2009CZ07099

PATIENT
  Sex: Male
  Weight: 18.9 kg

DRUGS (1)
  1. ELIDEL ASM+CRE [Suspect]
     Indication: DERMATITIS ATOPIC
     Dosage: TWICE DAILY
     Route: 061
     Dates: start: 20050408

REACTIONS (3)
  - COUGH [None]
  - LARYNGITIS [None]
  - RHINITIS ALLERGIC [None]
